FAERS Safety Report 19569711 (Version 1)
Quarter: 2021Q3

REPORT INFORMATION
  Report Type: Spontaneous
  Country: US (occurrence: US)
  Receive Date: 20210716
  Receipt Date: 20210716
  Transmission Date: 20211014
  Serious: Yes (Other)
  Sender: FDA-Public Use
  Company Number: US-ARBOR PHARMACEUTICALS, LLC-US-2021ARB000832

PATIENT
  Age: 67 Year

DRUGS (3)
  1. TRIPTODUR [Suspect]
     Active Substance: TRIPTORELIN
     Indication: PROSTATE CANCER
     Dosage: UNK
     Route: 065
  2. TRIPTODUR [Suspect]
     Active Substance: TRIPTORELIN
  3. TRIPTODUR [Suspect]
     Active Substance: TRIPTORELIN

REACTIONS (6)
  - Visual field defect [Unknown]
  - Ophthalmoplegia [Recovered/Resolved]
  - Blood luteinising hormone decreased [Unknown]
  - Pituitary apoplexy [Unknown]
  - Headache [Unknown]
  - Blood follicle stimulating hormone decreased [Unknown]
